FAERS Safety Report 20578833 (Version 1)
Quarter: 2022Q1

REPORT INFORMATION
  Report Type: Spontaneous
  Country: GB (occurrence: GB)
  Receive Date: 20220310
  Receipt Date: 20220310
  Transmission Date: 20220423
  Serious: Yes (Other)
  Sender: FDA-Public Use
  Company Number: GB-MHRA-MED-202203032138432940-O6ONN

PATIENT
  Age: 58 Year
  Sex: Female
  Weight: 103 kg

DRUGS (2)
  1. FAMOTIDINE [Suspect]
     Active Substance: FAMOTIDINE
     Indication: Abdominal pain upper
     Dosage: 40 MILLIGRAM, QD (AT NIGHT)
  2. FAMOTIDINE [Suspect]
     Active Substance: FAMOTIDINE
     Indication: Gastrointestinal pain

REACTIONS (2)
  - Micturition urgency [Not Recovered/Not Resolved]
  - Urinary incontinence [Unknown]

NARRATIVE: CASE EVENT DATE: 20220214
